FAERS Safety Report 6522631-5 (Version None)
Quarter: 2009Q4

REPORT INFORMATION
  Report Type: 
  Country: None (occurrence: None)
  Receive Date: 20091214
  Receipt Date: 20090817
  Transmission Date: 20100525
  Serious: Yes (Other)
  Sender: FDA-Public Use
  Company Number: 651054

PATIENT
  Age: 60 Year
  Sex: Female
  Weight: 112.5 kg

DRUGS (15)
  1. PEGASYS [Suspect]
     Indication: HEPATITIS C
     Dosage: 180 UG 1 PER 1 WEEK SUBCUTANEOUS
     Route: 058
     Dates: start: 20090612
  2. RIBAVIRIN [Suspect]
     Indication: HEPATITIS C
     Dosage: 800 MG DAILY ORAL
     Route: 048
     Dates: start: 20090612
  3. LEVSIN (HYOSCYAMINE SULFATE) [Concomitant]
  4. HYDROCHLOROTHIAZIDE [Concomitant]
  5. OMEPRAZOLE [Concomitant]
  6. NEURONTIN [Concomitant]
  7. PROZAC [Concomitant]
  8. XANAX [Concomitant]
  9. ELAVIL [Concomitant]
  10. ZANAFLEX [Concomitant]
  11. CALCIUM (CALCIUM) [Concomitant]
  12. FLAXSEED (LINUM USITATISSIMUM) [Concomitant]
  13. ASCORBIC ACID [Concomitant]
  14. MULTIVITAMIN [Concomitant]
  15. TRAMADOL HCL [Concomitant]

REACTIONS (7)
  - ANAEMIA [None]
  - DECREASED APPETITE [None]
  - DIARRHOEA [None]
  - DIZZINESS [None]
  - NAUSEA [None]
  - RASH [None]
  - WEIGHT DECREASED [None]
